FAERS Safety Report 20318334 (Version 3)
Quarter: 2022Q1

REPORT INFORMATION
  Report Type: Spontaneous
  Country: US (occurrence: US)
  Receive Date: 20220110
  Receipt Date: 20220304
  Transmission Date: 20220423
  Serious: Yes (Other)
  Sender: FDA-Public Use
  Company Number: US-ORGANON-O2201USA000460

PATIENT
  Sex: Female

DRUGS (1)
  1. NEXPLANON [Suspect]
     Active Substance: ETONOGESTREL
     Indication: Contraception
     Dosage: ONE IMPLANT, EVERY THREE YEARS
     Route: 059
     Dates: start: 2012

REACTIONS (4)
  - Pregnancy with implant contraceptive [Unknown]
  - Unintended pregnancy [Unknown]
  - Complication associated with device [Not Recovered/Not Resolved]
  - Incorrect product administration duration [Unknown]

NARRATIVE: CASE EVENT DATE: 20150101
